FAERS Safety Report 7046578-3 (Version None)
Quarter: 2010Q4

REPORT INFORMATION
  Report Type: 
  Country: None (occurrence: None)
  Receive Date: 20101015
  Receipt Date: 20101007
  Transmission Date: 20110411
  Serious: Yes (Hospitalization)
  Sender: FDA-Public Use
  Company Number: US-BIOGENIDEC-2010BI035098

PATIENT
  Sex: Female

DRUGS (3)
  1. AVONEX [Suspect]
     Indication: MULTIPLE SCLEROSIS
     Route: 030
     Dates: start: 20011201, end: 20030101
  2. AVONEX [Suspect]
     Route: 030
     Dates: start: 20030101
  3. IRON [Concomitant]
     Route: 042
     Dates: start: 20100401

REACTIONS (9)
  - ANAEMIA [None]
  - ARTHRALGIA [None]
  - ARTHROPATHY [None]
  - DYSGEUSIA [None]
  - JOINT SWELLING [None]
  - OEDEMA PERIPHERAL [None]
  - SKIN BACTERIAL INFECTION [None]
  - SKIN DISCOLOURATION [None]
  - VAGINAL INFECTION [None]
